FAERS Safety Report 9010875 (Version 1)
Quarter: 2013Q1

REPORT INFORMATION
  Report Type: Spontaneous
  Country: FR (occurrence: FR)
  Receive Date: 20130109
  Receipt Date: 20130109
  Transmission Date: 20140127
  Serious: Yes (Hospitalization)
  Sender: FDA-Public Use
  Company Number: FR-B.I. PHARMACEUTICALS,INC./RIDGEFIELD-2013-FF-00059FF

PATIENT
  Age: 66 Year
  Sex: Male

DRUGS (6)
  1. PRADAXA [Suspect]
     Dosage: 220 MG
     Route: 048
     Dates: start: 2011, end: 2012
  2. PRADAXA [Suspect]
     Dosage: 220 MG
     Route: 048
     Dates: start: 20120911, end: 20120913
  3. PREVISCAN [Suspect]
     Route: 048
     Dates: start: 20120815, end: 20120910
  4. NEURONTIN [Suspect]
     Dosage: 300 MG
     Route: 048
     Dates: start: 201206
  5. INEXIUM [Suspect]
     Dosage: 40 MG
     Route: 048
     Dates: start: 201208
  6. PROMUS STENT [Suspect]
     Dates: start: 20120814

REACTIONS (1)
  - Anti factor VIII antibody test [Not Recovered/Not Resolved]
